FAERS Safety Report 14217351 (Version 2)
Quarter: 2017Q4

REPORT INFORMATION
  Report Type: Report from Study
  Country: None (occurrence: US)
  Receive Date: 20171123
  Receipt Date: 20171128
  Transmission Date: 20180321
  Serious: Yes (Other)
  Sender: FDA-Public Use
  Company Number: US-ABBVIE-17K-163-2167185-00

PATIENT
  Age: 80 Year
  Sex: Male
  Weight: 104.42 kg

DRUGS (1)
  1. HUMIRA [Suspect]
     Active Substance: ADALIMUMAB
     Indication: PSORIASIS
     Route: 058
     Dates: start: 2015

REACTIONS (6)
  - Rhinorrhoea [Recovered/Resolved]
  - Skin discolouration [Recovering/Resolving]
  - Dental caries [Recovering/Resolving]
  - Bronchitis [Recovered/Resolved]
  - Tooth disorder [Recovering/Resolving]
  - Post procedural infection [Recovered/Resolved]

NARRATIVE: CASE EVENT DATE: 2017
